FAERS Safety Report 5471140-3 (Version None)
Quarter: 2007Q3

REPORT INFORMATION
  Report Type: 
  Country: None (occurrence: None)
  Receive Date: 20070928
  Receipt Date: 20070919
  Transmission Date: 20080115
  Serious: Yes (Hospitalization)
  Sender: FDA-Public Use
  Company Number: GB-ROCHE-510193

PATIENT
  Age: 37 Year
  Sex: Female

DRUGS (8)
  1. RIBAVIRIN [Suspect]
     Dosage: FREQUENCY NOT PROVIDED. MANUFACTURER REPORTED AS ROCHE.
     Route: 048
     Dates: start: 20070529, end: 20070719
  2. RIBAVIRIN [Suspect]
     Route: 048
     Dates: start: 20070725
  3. LOCTERON [Suspect]
     Dosage: DRUG NAME REPORTED AS LOCTERON (POLYACTIVE - INTERFERON ALFA 2B).  MANUFACTURERS: BIOLEX, INC AND O+
     Route: 058
     Dates: start: 20070529, end: 20070710
  4. LOCTERON [Suspect]
     Route: 058
     Dates: start: 20070724
  5. CLARITIN [Concomitant]
     Dates: start: 20070605, end: 20070619
  6. OMEPRAZOLE [Concomitant]
     Dates: start: 20070609, end: 20070615
  7. CLARITHROMYCIN [Concomitant]
     Dates: start: 20070609, end: 20070615
  8. DE-NOL [Concomitant]
     Dates: start: 20070609, end: 20070615

REACTIONS (1)
  - EAR INFECTION [None]
